FAERS Safety Report 9729797 (Version 2)
Quarter: 2015Q3

REPORT INFORMATION
  Report Type: Spontaneous
  Country: US (occurrence: US)
  Receive Date: 20131204
  Receipt Date: 20150804
  Transmission Date: 20151125
  Serious: No
  Sender: FDA-Public Use
  Company Number: US-GILEAD-2009-0022468

PATIENT
  Age: 67 Year
  Sex: Female
  Weight: 64.41 kg

DRUGS (11)
  1. ASPIRIN. [Concomitant]
     Active Substance: ASPIRIN
  2. IBUPROFEN. [Concomitant]
     Active Substance: IBUPROFEN
  3. LETAIRIS [Suspect]
     Active Substance: AMBRISENTAN
     Indication: PULMONARY ARTERIAL HYPERTENSION
     Route: 048
     Dates: start: 20090325
  4. ADVAIR HFA [Concomitant]
     Active Substance: FLUTICASONE PROPIONATE\SALMETEROL XINAFOATE
  5. SPIRONOLACTONE. [Concomitant]
     Active Substance: SPIRONOLACTONE
  6. METHIMAZOLE. [Concomitant]
     Active Substance: METHIMAZOLE
  7. SPIRIVA [Concomitant]
     Active Substance: TIOTROPIUM BROMIDE MONOHYDRATE
  8. DELSYM [Concomitant]
     Active Substance: DEXTROMETHORPHAN
  9. MULTIVITAMIN [Concomitant]
     Active Substance: VITAMINS
  10. NIFEDIPINE. [Concomitant]
     Active Substance: NIFEDIPINE
  11. CALCIUM CITRATE + D [Concomitant]

REACTIONS (1)
  - Peripheral swelling [Unknown]
